FAERS Safety Report 25811121 (Version 1)
Quarter: 2025Q3

REPORT INFORMATION
  Report Type: Spontaneous
  Country: EU (occurrence: EU)
  Receive Date: 20250917
  Receipt Date: 20250917
  Transmission Date: 20251020
  Serious: Yes (Hospitalization)
  Sender: AMGEN
  Company Number: EU-PEI-202500019469

PATIENT
  Age: 63 Year
  Sex: Male
  Weight: 88 kg

DRUGS (4)
  1. REPATHA [Suspect]
     Active Substance: EVOLOCUMAB
     Indication: Hypercholesterolaemia
     Route: 065
     Dates: start: 20250801
  2. COSENTYX [Concomitant]
     Active Substance: SECUKINUMAB
     Indication: Psoriatic arthropathy
     Dosage: WEEKLY APPLICATION
     Route: 065
  3. COSENTYX [Concomitant]
     Active Substance: SECUKINUMAB
     Indication: Psoriasis
  4. COSENTYX [Concomitant]
     Active Substance: SECUKINUMAB
     Indication: Ankylosing spondylitis

REACTIONS (4)
  - Henoch-Schonlein purpura [Not Recovered/Not Resolved]
  - Oedema [Not Recovered/Not Resolved]
  - Dyspnoea [Not Recovered/Not Resolved]
  - Proteinuria [Not Recovered/Not Resolved]

NARRATIVE: CASE EVENT DATE: 20250803
